FAERS Safety Report 6288134-0 (Version None)
Quarter: 2009Q3

REPORT INFORMATION
  Report Type: 
  Country: None (occurrence: None)
  Receive Date: 20090729
  Receipt Date: 20080703
  Transmission Date: 20100115
  Serious: No
  Sender: FDA-Public Use
  Company Number: A0736252A

PATIENT
  Age: 2 Month
  Sex: Male

DRUGS (2)
  1. RANITIDINE [Suspect]
     Indication: ILL-DEFINED DISORDER
     Route: 048
     Dates: end: 20080701
  2. MYLICON [Concomitant]

REACTIONS (6)
  - FLATULENCE [None]
  - ILL-DEFINED DISORDER [None]
  - MUSCLE SPASMS [None]
  - MUSCLE TIGHTNESS [None]
  - PAIN [None]
  - TREMOR [None]
